FAERS Safety Report 25059326 (Version 1)
Quarter: 2025Q1

REPORT INFORMATION
  Report Type: Spontaneous
  Country: CA (occurrence: CA)
  Receive Date: 20250310
  Receipt Date: 20250310
  Transmission Date: 20250409
  Serious: Yes (Other)
  Sender: SANOFI AVENTIS
  Company Number: CA-SA-2025SA067615

PATIENT
  Age: 56 Year
  Sex: Female
  Weight: 30.91 kg

DRUGS (11)
  1. ADMELOG [Suspect]
     Active Substance: INSULIN LISPRO
     Indication: Type 1 diabetes mellitus
     Route: 065
  2. FLUVASTATIN [Concomitant]
     Active Substance: FLUVASTATIN SODIUM
  3. HUMULIN R [Concomitant]
     Active Substance: INSULIN HUMAN
     Route: 030
  4. HYDROMORPHONE [Concomitant]
     Active Substance: HYDROMORPHONE
  5. IRON [Concomitant]
     Active Substance: IRON
  6. LORAZEPAM [Concomitant]
     Active Substance: LORAZEPAM
  7. METOPROLOL [Concomitant]
     Active Substance: METOPROLOL
  8. NITRAZEPAM [Concomitant]
     Active Substance: NITRAZEPAM
  9. PREVACID [Concomitant]
     Active Substance: LANSOPRAZOLE
  10. SPIRONOLACTONE [Concomitant]
     Active Substance: SPIRONOLACTONE
  11. WELLBUTRIN [Concomitant]
     Active Substance: BUPROPION HYDROCHLORIDE

REACTIONS (1)
  - Rash [Not Recovered/Not Resolved]
